FAERS Safety Report 7251243-3 (Version None)
Quarter: 2011Q1

REPORT INFORMATION
  Report Type: 
  Country: None (occurrence: None)
  Receive Date: 20110128
  Receipt Date: 20110119
  Transmission Date: 20110831
  Serious: Yes (Other)
  Sender: FDA-Public Use
  Company Number: SE-JNJFOC-20101207495

PATIENT
  Age: 27 Year
  Sex: Female

DRUGS (3)
  1. ALL OTHER THERAPEUTIC PRODUCTS [Concomitant]
     Indication: ILL-DEFINED DISORDER
  2. IMODIUM [Suspect]
     Dosage: 3-5 ML
     Route: 048
  3. IMODIUM [Suspect]
     Indication: DIARRHOEA
     Dosage: 3-5 ML SOLUTION
     Route: 048

REACTIONS (5)
  - FATIGUE [None]
  - MUCOSAL DRYNESS [None]
  - MOOD ALTERED [None]
  - DEPRESSION [None]
  - ADVERSE EVENT [None]
